FAERS Safety Report 19460322 (Version 4)
Quarter: 2025Q2

REPORT INFORMATION
  Report Type: Spontaneous
  Country: CZ (occurrence: CZ)
  Receive Date: 20210625
  Receipt Date: 20250626
  Transmission Date: 20250717
  Serious: Yes (Life-Threatening, Hospitalization, Other)
  Sender: AUROBINDO
  Company Number: CZ-PFIZER INC-2015185864

PATIENT
  Age: 35 Year
  Sex: Female

DRUGS (4)
  1. AMOXICILLIN\CLAVULANIC ACID [Suspect]
     Active Substance: AMOXICILLIN\CLAVULANIC ACID
     Indication: Product used for unknown indication
     Route: 065
  2. CEFOTAXIME [Suspect]
     Active Substance: CEFOTAXIME SODIUM
     Indication: Endometritis
     Route: 065
  3. CLINDAMYCIN [Suspect]
     Active Substance: CLINDAMYCIN
     Indication: Endometritis
     Route: 065
  4. GENTAMICIN [Suspect]
     Active Substance: GENTAMICIN
     Indication: Endometritis
     Route: 065

REACTIONS (10)
  - Toxic epidermal necrolysis [Recovered/Resolved]
  - Hyperpyrexia [Recovering/Resolving]
  - Pulmonary oedema [Recovered/Resolved]
  - Pulmonary embolism [Recovered/Resolved]
  - General physical health deterioration [Unknown]
  - Blister [Recovering/Resolving]
  - Petechiae [Recovering/Resolving]
  - Rash macular [Recovering/Resolving]
  - Skin haemorrhage [Recovering/Resolving]
  - Erythema [Recovering/Resolving]
